FAERS Safety Report 17657362 (Version 2)
Quarter: 2020Q4

REPORT INFORMATION
  Report Type: Report from Study
  Country: US (occurrence: US)
  Receive Date: 20200410
  Receipt Date: 20201110
  Transmission Date: 20210113
  Serious: Yes (Hospitalization)
  Sender: FDA-Public Use
  Company Number: US-GILEAD-2020-0458579

PATIENT
  Sex: Male

DRUGS (30)
  1. AZTREONAM LYSINE [Suspect]
     Active Substance: AZTREONAM LYSINE
     Indication: PSEUDOMONAS INFECTION
     Dosage: 75 MG, TID EVERY OTHER MONTH
     Route: 055
  2. POTASSIUM [Concomitant]
     Active Substance: POTASSIUM
  3. MICONAZOLE. [Concomitant]
     Active Substance: MICONAZOLE
  4. BENZOYL PEROXIDE. [Concomitant]
     Active Substance: BENZOYL PEROXIDE
  5. BUDESONIDE. [Concomitant]
     Active Substance: BUDESONIDE
  6. NANOVM 1 TO 3 YEARS [Concomitant]
  7. PROSOURCE TF [Concomitant]
  8. VALIUM [Concomitant]
     Active Substance: DIAZEPAM
  9. VIMPAT [Concomitant]
     Active Substance: LACOSAMIDE
  10. MUPIROCIN. [Concomitant]
     Active Substance: MUPIROCIN
  11. EPIDIOLEX [Concomitant]
     Active Substance: CANNABIDIOL
  12. PULMOZYME [Concomitant]
     Active Substance: DORNASE ALFA
     Dosage: UNK
  13. CLONAZEPAM. [Concomitant]
     Active Substance: CLONAZEPAM
  14. MIRAPEX [Concomitant]
     Active Substance: PRAMIPEXOLE DIHYDROCHLORIDE
  15. NYSTATIN. [Concomitant]
     Active Substance: NYSTATIN
  16. ACIDOPHILUS/PECTIN [Concomitant]
  17. PHENOBARBITAL. [Concomitant]
     Active Substance: PHENOBARBITAL
  18. FOLIC ACID. [Concomitant]
     Active Substance: FOLIC ACID
  19. CITRIC ACID;SODIUM CITRATE [Concomitant]
  20. FERROUS SULFATE. [Concomitant]
     Active Substance: FERROUS SULFATE
  21. POLYETHYLENE GLYCOL [MACROGOL] [Concomitant]
     Active Substance: POLYETHYLENE GLYCOLS
  22. ALDACTAZIDE [Concomitant]
     Active Substance: HYDROCHLOROTHIAZIDE\SPIRONOLACTONE
  23. BISACODYL. [Concomitant]
     Active Substance: BISACODYL
  24. DIAZEPAM. [Concomitant]
     Active Substance: DIAZEPAM
  25. PROTONIX [OMEPRAZOLE] [Concomitant]
     Active Substance: OMEPRAZOLE
  26. BACTRIM [Concomitant]
     Active Substance: SULFAMETHOXAZOLE\TRIMETHOPRIM
  27. SODIUM CHLORIDE. [Concomitant]
     Active Substance: SODIUM CHLORIDE
  28. ALBUTEROL [SALBUTAMOL] [Concomitant]
     Active Substance: ALBUTEROL
  29. KEPPRA [Concomitant]
     Active Substance: LEVETIRACETAM
  30. IRON [Concomitant]
     Active Substance: IRON

REACTIONS (2)
  - Off label use [Not Recovered/Not Resolved]
  - Urinary tract infection [Not Recovered/Not Resolved]
